FAERS Safety Report 10430025 (Version 1)
Quarter: 2014Q3

REPORT INFORMATION
  Report Type: Spontaneous
  Country: US (occurrence: US)
  Receive Date: 20140904
  Receipt Date: 20140904
  Transmission Date: 20150326
  Serious: No
  Sender: FDA-Public Use
  Company Number: US-BAYER-2014-127841

PATIENT
  Age: 69 Year
  Sex: Female
  Weight: 86 kg

DRUGS (15)
  1. TRAMADOL [Concomitant]
     Active Substance: TRAMADOL
     Indication: ARTHRALGIA
     Dosage: 50 MG, PRN
  2. ESTRADIOL HEMIHYDRATE (6.5) [Suspect]
     Active Substance: ESTRADIOL HEMIHYDRATE
     Indication: HAIR GROWTH ABNORMAL
  3. GLUCOSAMINE W/CHONDROITIN SULFATE [Concomitant]
     Indication: SUPPLEMENTATION THERAPY
     Dosage: 1000 MG, BID
  4. BABY ASPIRIN [Concomitant]
     Active Substance: ASPIRIN
     Indication: SUPPLEMENTATION THERAPY
     Dosage: 81 MG, QD
  5. FISH OIL [Concomitant]
     Active Substance: FISH OIL
     Indication: SUPPLEMENTATION THERAPY
     Dosage: 1000 MG, QD
  6. CALCIUM [Concomitant]
     Active Substance: CALCIUM
     Indication: SUPPLEMENTATION THERAPY
     Dosage: 500 MG, BID
  7. ATENOLOL. [Concomitant]
     Active Substance: ATENOLOL
     Indication: BLOOD PRESSURE ABNORMAL
     Dosage: 50 MG, QD
  8. LOVASTATIN. [Concomitant]
     Active Substance: LOVASTATIN
     Indication: BLOOD CHOLESTEROL ABNORMAL
     Dosage: 40 MG, QD
  9. TRIAMTEREN HCT [Concomitant]
     Indication: FLUID RETENTION
  10. ESTRADIOL HEMIHYDRATE (6.5) [Suspect]
     Active Substance: ESTRADIOL HEMIHYDRATE
     Indication: HOT FLUSH
     Dosage: 0.05 MG, UNK
     Route: 062
     Dates: start: 20140806
  11. HYDROXYCHLOROQUINE [Concomitant]
     Active Substance: HYDROXYCHLOROQUINE
     Dosage: 200 MG, QD
  12. PREDNISONE. [Concomitant]
     Active Substance: PREDNISONE
     Indication: ARTHRALGIA
     Dosage: 5 MG, QD
  13. LEVOTHYROXINE [Concomitant]
     Active Substance: LEVOTHYROXINE
     Indication: HYPOTHYROIDISM
     Dosage: 125 MG, QD
  14. PANTOPRAZOLE [Concomitant]
     Active Substance: PANTOPRAZOLE SODIUM
     Indication: GASTROOESOPHAGEAL REFLUX DISEASE
     Dosage: 40 MG, QD
  15. PROZAC [Concomitant]
     Active Substance: FLUOXETINE HYDROCHLORIDE
     Indication: DEPRESSION
     Dosage: 40 MG, QD

REACTIONS (2)
  - Product adhesion issue [None]
  - Drug administered at inappropriate site [Recovered/Resolved]

NARRATIVE: CASE EVENT DATE: 20140815
